FAERS Safety Report 5358560-2 (Version None)
Quarter: 2007Q2

REPORT INFORMATION
  Report Type: 
  Country: None (occurrence: None)
  Receive Date: 20070613
  Receipt Date: 20070613
  Transmission Date: 20071010
  Serious: Yes (Life-Threatening, Hospitalization)
  Sender: FDA-Public Use
  Company Number: None

PATIENT
  Sex: Female
  Weight: 54.4316 kg

DRUGS (1)
  1. TAXOL [Suspect]
     Indication: LUNG NEOPLASM MALIGNANT
     Dates: start: 20070612, end: 20070612

REACTIONS (7)
  - ADVERSE DRUG REACTION [None]
  - APNOEA [None]
  - CIRCULATORY COLLAPSE [None]
  - COMA [None]
  - FEELING ABNORMAL [None]
  - PULMONARY EMBOLISM [None]
  - PULSE ABSENT [None]
